FAERS Safety Report 9521014 (Version 1)
Quarter: 2013Q1

REPORT INFORMATION
  Report Type: Spontaneous
  Country: US (occurrence: None)
  Receive Date: 20130305
  Receipt Date: 20130305
  Transmission Date: 20140127
  Serious: Yes (Hospitalization, Other)
  Sender: FDA-Public Use
  Company Number: 163-21880-12030138

PATIENT
  Age: 63 Year
  Sex: Female
  Weight: 61.24 kg

DRUGS (3)
  1. REVLIMID [Suspect]
     Indication: MYELOFIBROSIS
     Dosage: 1 IN 1 D
     Route: 048
     Dates: start: 20080115
  2. REVLIMID [Suspect]
     Indication: BLOOD DISORDER
     Dosage: 1 IN 1 D
     Route: 048
     Dates: start: 20080115
  3. PROTON PUMP INHIBITOR (PROTON PUMP INHIBITORS) (UNKNOWN) [Concomitant]

REACTIONS (10)
  - Infection [None]
  - Animal bite [None]
  - Sleep disorder [None]
  - Neuropathy peripheral [None]
  - Dry eye [None]
  - Dyspepsia [None]
  - Constipation [None]
  - Diarrhoea [None]
  - Dry mouth [None]
  - Nasal dryness [None]
